FAERS Safety Report 6306892-3 (Version None)
Quarter: 2009Q3

REPORT INFORMATION
  Report Type: 
  Country: None (occurrence: None)
  Receive Date: 20090810
  Receipt Date: 20090729
  Transmission Date: 20100115
  Serious: Yes (Other)
  Sender: FDA-Public Use
  Company Number: GB-GDP-09405735

PATIENT
  Sex: Female

DRUGS (1)
  1. METVIXIA [Suspect]
     Dosage: 1 DF TOPICAL
     Route: 061
     Dates: start: 20090121

REACTIONS (2)
  - DRUG HYPERSENSITIVITY [None]
  - SKIN TEST POSITIVE [None]
